FAERS Safety Report 18761581 (Version 2)
Quarter: 2021Q1

REPORT INFORMATION
  Report Type: Spontaneous
  Country: FI (occurrence: FI)
  Receive Date: 20210120
  Receipt Date: 20210211
  Transmission Date: 20210419
  Serious: Yes (Hospitalization)
  Sender: FDA-Public Use
  Company Number: FI-ACCORD-214862

PATIENT
  Age: 48 Year
  Sex: Female
  Weight: 70 kg

DRUGS (7)
  1. ESOMEPRAZOLE SANDOZ [Concomitant]
     Active Substance: ESOMEPRAZOLE
     Dosage: 20 MG, DOSE 1?2 X 1
     Route: 048
  2. PANADOL FORTE [Concomitant]
     Dosage: 1000 MG, DOSE: 1 X 1?3
     Route: 048
  3. PRIMPERAN [Concomitant]
     Active Substance: METOCLOPRAMIDE HYDROCHLORIDE
     Dosage: 10 MG, DOSE 1 X 1?3
     Route: 048
  4. PANACOD [Concomitant]
     Active Substance: ACETAMINOPHEN\CODEINE PHOSPHATE
     Dosage: DOSE: 1?2 X 1?3
     Route: 048
  5. DOCETAXEL ACCORD [Suspect]
     Active Substance: DOCETAXEL
     Indication: BREAST CANCER
     Dosage: STRENGTH?160 MG/8 ML
     Route: 042
     Dates: start: 20201215, end: 20210105
  6. DEXAMETASON ABCUR [Concomitant]
     Dosage: 4 MG
     Route: 048
  7. BURANA [Concomitant]
     Active Substance: IBUPROFEN
     Dosage: STRENGTH 600 MG, DOSE 1 X 1?3
     Route: 048

REACTIONS (6)
  - Paraesthesia [Recovered/Resolved]
  - Nasal congestion [Recovered/Resolved]
  - Flushing [Recovered/Resolved]
  - Sneezing [Recovered/Resolved]
  - Dyspnoea [Recovered/Resolved]
  - Urticaria [Recovered/Resolved]

NARRATIVE: CASE EVENT DATE: 20210105
